FAERS Safety Report 18232728 (Version 1)
Quarter: 2020Q3

REPORT INFORMATION
  Report Type: Spontaneous
  Country: US (occurrence: US)
  Receive Date: 20200904
  Receipt Date: 20200904
  Transmission Date: 20201103
  Serious: Yes (Life-Threatening, Hospitalization)
  Sender: FDA-Public Use
  Company Number: None

PATIENT
  Age: 68 Year
  Sex: Male
  Weight: 71 kg

DRUGS (1)
  1. DIGOXIN (DIGOXIN (LANOXIN) 0.25MG TAB) [Suspect]
     Active Substance: DIGOXIN
     Indication: ATRIAL FIBRILLATION
     Route: 048
     Dates: start: 20200716, end: 20200719

REACTIONS (8)
  - Acute respiratory failure [None]
  - Cardioactive drug level increased [None]
  - Ventricular fibrillation [None]
  - Atrial fibrillation [None]
  - Therapy interrupted [None]
  - Cardio-respiratory arrest [None]
  - Palpitations [None]
  - Tachycardia [None]

NARRATIVE: CASE EVENT DATE: 20200719
